FAERS Safety Report 11665334 (Version 2)
Quarter: 2015Q4

REPORT INFORMATION
  Report Type: Spontaneous
  Country: US (occurrence: US)
  Receive Date: 20151027
  Receipt Date: 20151027
  Transmission Date: 20160304
  Serious: No
  Sender: FDA-Public Use
  Company Number: GXBR2015US002028

PATIENT
  Sex: Male

DRUGS (1)
  1. ZINC OXIDE. [Suspect]
     Active Substance: ZINC OXIDE
     Indication: THERMAL BURN
     Dosage: UNK DF, UNK
     Route: 061

REACTIONS (1)
  - Off label use [Unknown]
